FAERS Safety Report 4895940-3 (Version None)
Quarter: 2006Q1

REPORT INFORMATION
  Report Type: 
  Country: None (occurrence: None)
  Receive Date: 20060125
  Receipt Date: 20060112
  Transmission Date: 20060701
  Serious: Yes (Death, Hospitalization, Other)
  Sender: FDA-Public Use
  Company Number: 2005086811

PATIENT
  Age: 72 Year
  Sex: Male

DRUGS (1)
  1. LIPITOR [Suspect]
     Indication: DYSLIPIDAEMIA
     Dosage: 20 MG (20 MG, 1 IN 1 D), ORAL
     Route: 048
     Dates: start: 20030501, end: 20050101

REACTIONS (6)
  - HEPATIC FAILURE [None]
  - LIVER DISORDER [None]
  - NAUSEA [None]
  - OEDEMA [None]
  - PSYCHOTIC DISORDER [None]
  - TUBERCULOSIS GASTROINTESTINAL [None]
